FAERS Safety Report 5067853-8 (Version None)
Quarter: 2006Q3

REPORT INFORMATION
  Report Type: 
  Country: None (occurrence: None)
  Receive Date: 20060714
  Receipt Date: 20051018
  Transmission Date: 20061208
  Serious: Yes (Life-Threatening)
  Sender: FDA-Public Use
  Company Number: PHEH2005US11630

PATIENT
  Age: 4 Year
  Sex: Female
  Weight: 13.2 kg

DRUGS (4)
  1. TRILEPTAL [Suspect]
     Indication: CONVULSION
     Dosage: 300 MG, BID, GASTRIC DRIP
     Dates: start: 20040310, end: 20051015
  2. PRILOSEC [Concomitant]
  3. PROTONIX [Concomitant]
  4. TAGAMET [Concomitant]

REACTIONS (3)
  - GASTROINTESTINAL HAEMORRHAGE [None]
  - PLATELET TRANSFUSION [None]
  - THROMBOCYTOPENIA [None]
